FAERS Safety Report 9119630 (Version 4)
Quarter: 2013Q2

REPORT INFORMATION
  Report Type: Spontaneous
  Country: LB (occurrence: LB)
  Receive Date: 20130226
  Receipt Date: 20130426
  Transmission Date: 20140414
  Serious: Yes (Death, Life-Threatening)
  Sender: FDA-Public Use
  Company Number: LB-NOVOPROD-371296

PATIENT
  Age: 40 Year
  Sex: Female
  Weight: 107 kg

DRUGS (3)
  1. VICTOZA [Suspect]
     Indication: OBESITY
     Dosage: 0.6 MG, QD
     Route: 065
     Dates: start: 20130104
  2. VICTOZA [Suspect]
     Dosage: 1.2 MG, QD
     Route: 065
     Dates: start: 20130111
  3. VICTOZA [Suspect]
     Dosage: 1.8 MG, QD
     Route: 065
     Dates: start: 20130113, end: 20130201

REACTIONS (4)
  - Cerebral haemorrhage [Fatal]
  - Cerebral venous thrombosis [Fatal]
  - Thrombocytopenia [Fatal]
  - Convulsion [Fatal]
